FAERS Safety Report 8735736 (Version 12)
Quarter: 2013Q1

REPORT INFORMATION
  Report Type: Report from Study
  Country: US (occurrence: US)
  Receive Date: 20120822
  Receipt Date: 20130201
  Transmission Date: 20140127
  Serious: Yes (Hospitalization, Other)
  Sender: FDA-Public Use
  Company Number: US-NOVOPROD-358050

PATIENT
  Age: 44 Year
  Sex: Male
  Weight: 141.3 kg

DRUGS (2)
  1. LIRAGLUTIDE FLEXPEN [Suspect]
     Indication: OBESITY
     Dosage: 0.6 MG, QD
     Route: 058
     Dates: start: 20110615
  2. LIRAGLUTIDE FLEXPEN [Suspect]
     Indication: TYPE 2 DIABETES MELLITUS
     Dosage: 3.0 MG, QD
     Route: 058
     Dates: start: 20110713, end: 20120711

REACTIONS (3)
  - Colon adenoma [Recovered/Resolved]
  - Colon adenoma [Recovered/Resolved]
  - Colon adenoma [Recovered/Resolved]
